FAERS Safety Report 10379856 (Version 1)
Quarter: 2014Q1

REPORT INFORMATION
  Report Type: Spontaneous
  Country: US (occurrence: None)
  Receive Date: 20140306
  Receipt Date: 20140306
  Transmission Date: 20141002
  Serious: Yes (Other)
  Sender: FDA-Public Use
  Company Number: 163-21880-13033299

PATIENT
  Sex: Male

DRUGS (20)
  1. REVLIMID (LENALIDOMIDE) (15 MILLIGRAM, CAPSULES) [Suspect]
     Indication: PLASMA CELL MYELOMA
     Route: 048
     Dates: start: 200904
  2. FOLIC ACID [Concomitant]
  3. PRAVASTATIN [Concomitant]
  4. WELLBUTRIN (BUPROPION HYDROCHLORIDE) [Concomitant]
  5. VITAMIN C (ASCORBIC ACID) [Concomitant]
  6. PRILOSEC (OMEPRAZOLE) [Concomitant]
  7. ASPIRIN BUFF (ACETYLSALICYLIC ACID) [Concomitant]
  8. CO ENZYM Q10 (UBIDECARENONE) [Concomitant]
  9. MSM (METHYLSULFONYLMETHANE) [Concomitant]
  10. GRAPE SEED (VITIS VINIFERA EXTRACT) [Concomitant]
  11. ALPHA LIPOIC (THIOCTIC ACID) [Concomitant]
  12. VITAMIN D (ERGOCALCIFEROL) [Concomitant]
  13. ACIDOPHILUS (LACTOBACILLUS ACIDOPHILUS) [Concomitant]
  14. ALPRAZOLAM [Concomitant]
  15. VITAMIN B COMPLEX (B-KOMPLEX ^LECIVA^) [Concomitant]
  16. VITAMIN B6 (PYRIDOXINE HYDROCHLORIDE) [Concomitant]
  17. SELENIUM [Concomitant]
  18. VITAMIN B12 (CYANOCOBALAMIN) [Concomitant]
  19. L-CYSTINE (CYSTINE) [Concomitant]
  20. CLARITIN (LORATADINE) [Concomitant]

REACTIONS (1)
  - Plasma cell myeloma [None]
